FAERS Safety Report 5168467-1 (Version None)
Quarter: 2006Q4

REPORT INFORMATION
  Report Type: 
  Country: None (occurrence: None)
  Receive Date: 20061201
  Receipt Date: 20060727
  Transmission Date: 20070319
  Serious: No
  Sender: FDA-Public Use
  Company Number: 2006086552

PATIENT
  Age: 70 Year
  Sex: Female
  Weight: 54.6 kg

DRUGS (6)
  1. SILDENAFIL CITRATE [Suspect]
     Indication: PULMONARY HYPERTENSION
     Dosage: 75 MG (25 MG, 3 IN 1 D), ORAL
     Route: 048
     Dates: start: 20050326
  2. TRACLEER [Suspect]
     Indication: PULMONARY HYPERTENSION
     Dosage: 125 MG, ORAL
     Route: 048
     Dates: start: 20060408
  3. ZANTAC [Concomitant]
  4. METHYCOBAL (MECOBALAMIN) [Concomitant]
  5. MUCOSTA (REBAMIPIDE) [Concomitant]
  6. NEUER (CETRAXATE HYDROCHLORIDE) [Concomitant]

REACTIONS (4)
  - CONJUNCTIVITIS [None]
  - HEADACHE [None]
  - HEPATIC FUNCTION ABNORMAL [None]
  - INTERSTITIAL LUNG DISEASE [None]
